FAERS Safety Report 6439246-X (Version None)
Quarter: 2009Q4

REPORT INFORMATION
  Report Type: 
  Country: None (occurrence: None)
  Receive Date: 20091113
  Receipt Date: 20091103
  Transmission Date: 20100525
  Serious: Yes (Other)
  Sender: FDA-Public Use
  Company Number: US-ABBOTT-09P-163-0564318-00

PATIENT
  Age: 46 Year
  Sex: Male

DRUGS (6)
  1. NORVIR [Suspect]
     Indication: HIV INFECTION
     Dates: start: 20080201
  2. REYATAZ [Suspect]
     Indication: HIV INFECTION
     Dates: start: 20080201
  3. PREZISTA [Suspect]
     Indication: HIV INFECTION
     Route: 048
     Dates: start: 20080201
  4. ETRAVIRINE [Suspect]
     Indication: HIV INFECTION
     Route: 048
     Dates: start: 20080201
  5. TRUVADA [Suspect]
     Indication: HIV INFECTION
     Dates: start: 20080201
  6. RALTEGRAVIR [Suspect]
     Indication: HIV INFECTION
     Route: 048
     Dates: start: 20080201

REACTIONS (4)
  - FATIGUE [None]
  - HYPERTENSION [None]
  - LIPODYSTROPHY ACQUIRED [None]
  - OSTEONECROSIS [None]
